FAERS Safety Report 9423130 (Version 2)
Quarter: 2013Q3

REPORT INFORMATION
  Report Type: Spontaneous
  Country: GB (occurrence: GB)
  Receive Date: 20130726
  Receipt Date: 20130819
  Transmission Date: 20140515
  Serious: Yes (Hospitalization, Other)
  Sender: FDA-Public Use
  Company Number: GB-PFIZER INC-2013213164

PATIENT
  Age: 44 Year
  Sex: Male

DRUGS (4)
  1. RIFAMPICIN [Suspect]
  2. CLARITHROMYCIN [Suspect]
     Indication: TUBERCULOSIS
  3. STREPTOMYCIN [Suspect]
     Indication: TUBERCULOSIS
  4. CIPROFLOXACIN [Concomitant]
     Indication: TUBERCULOSIS

REACTIONS (2)
  - Acute hepatic failure [Recovered/Resolved]
  - Liver function test abnormal [Recovered/Resolved]
